FAERS Safety Report 6288793-2 (Version None)
Quarter: 2009Q3

REPORT INFORMATION
  Report Type: 
  Country: None (occurrence: None)
  Receive Date: 20090729
  Receipt Date: 20090723
  Transmission Date: 20100115
  Serious: Yes (Death, Other)
  Sender: FDA-Public Use
  Company Number: JP-ABBOTT-08P-087-0492606-00

PATIENT
  Sex: Male

DRUGS (12)
  1. NORVIR [Suspect]
     Indication: HIV INFECTION
     Route: 048
     Dates: start: 20071218, end: 20080403
  2. AMPHOTERICIN B [Suspect]
     Indication: MENINGITIS CRYPTOCOCCAL
     Route: 042
     Dates: start: 20070529, end: 20070612
  3. AMPHOTERICIN B [Suspect]
     Route: 042
     Dates: start: 20080102, end: 20080219
  4. AMPHOTERICIN B [Suspect]
     Route: 042
     Dates: start: 20080306, end: 20080324
  5. ITRACONAZOLE [Suspect]
     Indication: MENINGITIS CRYPTOCOCCAL
     Dates: start: 20080525, end: 20080603
  6. TRUVADA [Concomitant]
     Indication: HIV INFECTION
     Route: 048
     Dates: start: 20070619, end: 20080608
  7. REYATAZ [Concomitant]
     Indication: HIV INFECTION
     Route: 048
     Dates: start: 20071218, end: 20080403
  8. KALETRA [Concomitant]
     Indication: HIV INFECTION
     Route: 048
     Dates: start: 20070619, end: 20071217
  9. STOCRIN [Concomitant]
     Indication: HIV INFECTION
     Route: 048
     Dates: start: 20080404, end: 20080608
  10. VALGANCICLOVIR HCL [Concomitant]
     Indication: CYTOMEGALOVIRUS CHORIORETINITIS
     Route: 048
     Dates: start: 20070605, end: 20070816
  11. VALGANCICLOVIR HCL [Concomitant]
     Route: 048
     Dates: start: 20070817, end: 20080312
  12. AZITHROMYCIN [Concomitant]
     Indication: OPPORTUNISTIC INFECTION PROPHYLAXIS
     Route: 048
     Dates: start: 20070611, end: 20080608

REACTIONS (4)
  - ELECTROLYTE IMBALANCE [None]
  - INFECTION [None]
  - LIVER DISORDER [None]
  - MENINGITIS CRYPTOCOCCAL [None]
